FAERS Safety Report 12846426 (Version 3)
Quarter: 2016Q4

REPORT INFORMATION
  Report Type: Report from Study
  Country: US (occurrence: US)
  Receive Date: 20161014
  Receipt Date: 20161201
  Transmission Date: 20170207
  Serious: Yes (Hospitalization, Other)
  Sender: FDA-Public Use
  Company Number: US-GILEAD-2016-0238079

PATIENT
  Age: 74 Year
  Sex: Female
  Weight: 48.53 kg

DRUGS (3)
  1. ADCIRCA [Concomitant]
     Active Substance: TADALAFIL
  2. AMBRISENTAN [Suspect]
     Active Substance: AMBRISENTAN
     Indication: PRODUCT USED FOR UNKNOWN INDICATION
     Dosage: 5 MG, QD
     Route: 065
     Dates: start: 20070816
  3. REMODULIN [Suspect]
     Active Substance: TREPROSTINIL
     Indication: PULMONARY HYPERTENSION
     Dosage: 0.100 UG/KG, UNK
     Route: 058
     Dates: start: 20120912

REACTIONS (7)
  - Infusion site haemorrhage [Unknown]
  - Dyspnoea [Unknown]
  - Device dislocation [Unknown]
  - Eustachian tube disorder [Unknown]
  - Presyncope [Unknown]
  - Dyspnoea exertional [Unknown]
  - Loss of consciousness [Unknown]

NARRATIVE: CASE EVENT DATE: 201607
